FAERS Safety Report 20950951 (Version 1)
Quarter: 2022Q2

REPORT INFORMATION
  Report Type: Spontaneous
  Country: US (occurrence: None)
  Receive Date: 20220610
  Receipt Date: 20220610
  Transmission Date: 20220721
  Serious: Yes (Hospitalization)
  Sender: FDA-Public Use
  Company Number: None

PATIENT
  Age: 22 Year
  Sex: Male

DRUGS (1)
  1. CLOZAPINE [Suspect]
     Active Substance: CLOZAPINE
     Route: 048

REACTIONS (6)
  - Ejection fraction decreased [None]
  - Cardiomyopathy [None]
  - Cerebrovascular accident [None]
  - Cerebral infarction [None]
  - Urine analysis abnormal [None]
  - Blood glucose increased [None]

NARRATIVE: CASE EVENT DATE: 20220416
